FAERS Safety Report 7864566-1 (Version None)
Quarter: 2011Q4

REPORT INFORMATION
  Report Type: 
  Country: None (occurrence: None)
  Receive Date: 20111028
  Receipt Date: 20111024
  Transmission Date: 20120403
  Serious: No
  Sender: FDA-Public Use
  Company Number: US-PFIZER INC-2011258414

PATIENT
  Sex: Female
  Weight: 156 kg

DRUGS (1)
  1. GENOTROPIN [Suspect]
     Dosage: 0.8 MG, 1X/DAY
     Route: 058
     Dates: start: 20070101

REACTIONS (2)
  - MYALGIA [None]
  - ARTHRALGIA [None]
